FAERS Safety Report 25446163 (Version 3)
Quarter: 2025Q4

REPORT INFORMATION
  Report Type: Report from Study
  Country: US (occurrence: US)
  Receive Date: 20250617
  Receipt Date: 20251224
  Transmission Date: 20260118
  Serious: Yes (Other)
  Sender: ALEXION PHARMACEUTICALS
  Company Number: US-AstraZeneca-CH-00890974A

PATIENT
  Sex: Male

DRUGS (2)
  1. RAVULIZUMAB [Suspect]
     Active Substance: RAVULIZUMAB
     Dosage: UNK
     Route: 065
  2. BENADRYL [Concomitant]
     Active Substance: DIPHENHYDRAMINE HYDROCHLORIDE
     Dosage: UNK
     Route: 065

REACTIONS (5)
  - Renal failure [Unknown]
  - Diabetes mellitus [Unknown]
  - Drug ineffective [Unknown]
  - Soft tissue mass [Recovered/Resolved]
  - Muscular weakness [Unknown]
